FAERS Safety Report 25864169 (Version 1)
Quarter: 2025Q3

REPORT INFORMATION
  Report Type: Spontaneous
  Country: EU (occurrence: EU)
  Receive Date: 20250930
  Receipt Date: 20250930
  Transmission Date: 20251021
  Serious: Yes (Hospitalization, Other)
  Sender: HIKMA
  Company Number: None

PATIENT
  Age: 16 Year
  Sex: Male

DRUGS (10)
  1. ACYCLOVIR [Suspect]
     Active Substance: ACYCLOVIR
     Indication: Infection
     Dosage: 2400 MILLIGRAM, QD
     Route: 042
     Dates: start: 20250812, end: 20250814
  2. CEFOTAXIME [Suspect]
     Active Substance: CEFOTAXIME SODIUM
     Indication: Infection
     Dosage: 8 GRAM, QD
     Route: 042
     Dates: start: 20250808, end: 20250813
  3. CLINDAMYCIN HYDROCHLORIDE [Suspect]
     Active Substance: CLINDAMYCIN HYDROCHLORIDE
     Indication: Infection
     Dosage: 2700 MILLIGRAM, QD
     Route: 042
     Dates: start: 20250808, end: 20250813
  4. METRONIDAZOLE [Suspect]
     Active Substance: METRONIDAZOLE
     Indication: Infection
     Dosage: 1500 MILLIGRAM, QD
     Route: 042
     Dates: start: 20250811, end: 20250816
  5. MELATONIN [Concomitant]
     Active Substance: MELATONIN
     Indication: Mental disorder
     Dosage: 2 MILLIGRAM, QD
     Route: 048
     Dates: end: 20250814
  6. FYCOMPA [Concomitant]
     Active Substance: PERAMPANEL
     Indication: Mental disorder
     Dosage: 8 MILLIGRAM, QD
     Route: 048
  7. VALPROATE SODIUM [Concomitant]
     Active Substance: VALPROATE SODIUM
     Indication: Mental disorder
     Dosage: 2000 MILLIGRAM, QD
     Route: 048
  8. TRIMEPRAZINE [Concomitant]
     Active Substance: TRIMEPRAZINE
     Indication: Mental disorder
     Dosage: 60 MILLIGRAM, QD
     Route: 048
     Dates: start: 20250801, end: 20250804
  9. TRANXENE [Concomitant]
     Active Substance: CLORAZEPATE DIPOTASSIUM
     Indication: Mental disorder
     Dosage: 10 MILLIGRAM, QD
     Route: 048
     Dates: start: 20250801, end: 20250805
  10. CLOBAZAM [Concomitant]
     Active Substance: CLOBAZAM
     Indication: Mental disorder
     Dosage: 10 MILLIGRAM, QD
     Route: 048

REACTIONS (1)
  - Altered state of consciousness [Recovering/Resolving]

NARRATIVE: CASE EVENT DATE: 20250812
